FAERS Safety Report 7799635-8 (Version None)
Quarter: 2011Q4

REPORT INFORMATION
  Report Type: 
  Country: None (occurrence: None)
  Receive Date: 20111006
  Receipt Date: 20110928
  Transmission Date: 20120403
  Serious: Yes (Hospitalization)
  Sender: FDA-Public Use
  Company Number: IT-BRISTOL-MYERS SQUIBB COMPANY-15715733

PATIENT
  Age: 81 Year
  Sex: Female

DRUGS (5)
  1. CARDURA [Concomitant]
  2. COUMADIN [Suspect]
     Indication: ATRIAL FIBRILLATION
     Dosage: 1DF=1UNIT/DAY
     Route: 048
     Dates: start: 20050425, end: 20110425
  3. METOPROLOL TARTRATE [Concomitant]
     Dosage: TABS
  4. LASIX [Concomitant]
     Dosage: TABLET
  5. LORTAAN [Concomitant]
     Dosage: FILM COATED TABS

REACTIONS (1)
  - ISCHAEMIC STROKE [None]
